FAERS Safety Report 6871715-0 (Version None)
Quarter: 2010Q3

REPORT INFORMATION
  Report Type: 
  Country: None (occurrence: None)
  Receive Date: 20100723
  Receipt Date: 20100702
  Transmission Date: 20110219
  Serious: Yes (Hospitalization)
  Sender: FDA-Public Use
  Company Number: A0834238A

PATIENT
  Age: 50 Year
  Sex: Female

DRUGS (6)
  1. AVANDIA [Suspect]
     Indication: DIABETES MELLITUS
     Dosage: 4MG PER DAY
     Route: 048
     Dates: start: 20000426, end: 20051214
  2. CELEBREX [Concomitant]
  3. NORVASC [Concomitant]
  4. ACTOS [Concomitant]
  5. INSULIN [Concomitant]
  6. GLIPIZIDE [Concomitant]
     Dates: end: 20051214

REACTIONS (4)
  - CARDIAC DISORDER [None]
  - HEART RATE IRREGULAR [None]
  - MYOCARDIAL INFARCTION [None]
  - PAIN [None]
